FAERS Safety Report 6568553-5 (Version None)
Quarter: 2010Q1

REPORT INFORMATION
  Report Type: 
  Country: None (occurrence: None)
  Receive Date: 20100128
  Receipt Date: 20100117
  Transmission Date: 20100710
  Serious: Yes (Hospitalization, Disabling)
  Sender: FDA-Public Use
  Company Number: CERZ-1000768

PATIENT
  Age: 5 Year
  Sex: Male
  Weight: 17.5 kg

DRUGS (3)
  1. CEREZYME [Suspect]
     Indication: GAUCHER'S DISEASE
     Dosage: 1800 U, Q2W, INTRAVENOUS
     Route: 042
     Dates: start: 20060315
  2. DIAZEPAM [Concomitant]
  3. CONVULEX (VALPROIC ACID) [Concomitant]

REACTIONS (3)
  - DYSPNOEA [None]
  - EPILEPSY [None]
  - LUNG DISORDER [None]
